FAERS Safety Report 11777224 (Version 1)
Quarter: 2015Q4

REPORT INFORMATION
  Report Type: Spontaneous
  Country: US (occurrence: US)
  Receive Date: 20151125
  Receipt Date: 20151125
  Transmission Date: 20160304
  Serious: No
  Sender: FDA-Public Use
  Company Number: US-PFIZER INC-2015396789

PATIENT
  Age: 64 Year
  Sex: Male
  Weight: 95.24 kg

DRUGS (2)
  1. REVATIO [Suspect]
     Active Substance: SILDENAFIL CITRATE
     Indication: CHRONIC OBSTRUCTIVE PULMONARY DISEASE
  2. REVATIO [Suspect]
     Active Substance: SILDENAFIL CITRATE
     Indication: DYSPNOEA
     Dosage: 20 MG, HALF A TABLET, 3X/DAY

REACTIONS (3)
  - Malaise [Unknown]
  - Product use issue [Unknown]
  - Gout [Unknown]

NARRATIVE: CASE EVENT DATE: 201510
